FAERS Safety Report 5387368-7 (Version None)
Quarter: 2007Q3

REPORT INFORMATION
  Report Type: 
  Country: None (occurrence: None)
  Receive Date: 20070703
  Receipt Date: 20070412
  Transmission Date: 20080115
  Serious: No
  Sender: FDA-Public Use
  Company Number: 2007PV032808

PATIENT
  Age: 70 Year
  Sex: Female

DRUGS (3)
  1. SYMLIN [Suspect]
     Indication: TYPE 1 DIABETES MELLITUS
     Dosage: 120 MCG; BID; SC
     Route: 058
     Dates: start: 20070217, end: 20070401
  2. HUMULIN R [Concomitant]
  3. HUMALOG [Concomitant]

REACTIONS (1)
  - DRUG INEFFECTIVE [None]
